FAERS Safety Report 24221238 (Version 1)
Quarter: 2024Q3

REPORT INFORMATION
  Report Type: Report from Study
  Country: US (occurrence: US)
  Receive Date: 20240819
  Receipt Date: 20240819
  Transmission Date: 20241017
  Serious: Yes (Other)
  Sender: ACADIA PHARMACEUTICALS
  Company Number: US-ACADIA PHARMACEUTICALS INC.-ACA-2024-TRF-004028

PATIENT
  Sex: Male

DRUGS (15)
  1. DAYBUE [Suspect]
     Active Substance: TROFINETIDE
     Indication: Rett syndrome
     Dosage: 20 MILLILITER, BID
     Dates: start: 202312
  2. LEVETIRACETAM [Concomitant]
     Active Substance: LEVETIRACETAM
  3. BRIVARACETAM [Concomitant]
     Active Substance: BRIVARACETAM
  4. LACOSAMIDE [Concomitant]
     Active Substance: LACOSAMIDE
  5. EPIDIOLEX [Concomitant]
     Active Substance: CANNABIDIOL
  6. TOPIRAMATE [Concomitant]
     Active Substance: TOPIRAMATE
  7. TRILEPTAL [Concomitant]
     Active Substance: OXCARBAZEPINE
  8. CLOBAZAM [Concomitant]
     Active Substance: CLOBAZAM
  9. BUDESONIDE [Concomitant]
     Active Substance: BUDESONIDE
  10. ALBUTEROL [Concomitant]
     Active Substance: ALBUTEROL
     Dosage: UNK, PRN
  11. FLUTICASONE [Concomitant]
     Active Substance: FLUTICASONE
  12. LEVOTHYROXINE [Concomitant]
     Active Substance: LEVOTHYROXINE\LEVOTHYROXINE SODIUM
  13. NUTROPIN [Concomitant]
     Active Substance: SOMATROPIN
  14. SINGULAIR [Concomitant]
     Active Substance: MONTELUKAST SODIUM
  15. VALTOCO [Concomitant]
     Active Substance: DIAZEPAM
     Dosage: AS NEEDED

REACTIONS (1)
  - Seizure [Unknown]
